FAERS Safety Report 8572803-3 (Version None)
Quarter: 2012Q3

REPORT INFORMATION
  Report Type: 
  Country: None (occurrence: None)
  Receive Date: 20120806
  Receipt Date: 20120717
  Transmission Date: 20120928
  Serious: Yes (Death, Hospitalization, Other)
  Sender: FDA-Public Use
  Company Number: PHHY2012US066904

PATIENT
  Sex: Male

DRUGS (6)
  1. BACLOFEN [Suspect]
     Indication: SPINAL CORD DISORDER
  2. ASPIRIN [Concomitant]
  3. DOCUSATE [Concomitant]
  4. BACLOFEN [Suspect]
     Indication: SPINAL CORD INJURY
     Dosage: 480.2 UG, DAILY
     Route: 037
  5. METHADON HYDROCHLORIDE TAB [Suspect]
  6. ALPRAZOLAM [Concomitant]

REACTIONS (4)
  - PULSE ABSENT [None]
  - WOUND [None]
  - CARDIAC ARREST [None]
  - TOXICITY TO VARIOUS AGENTS [None]
